FAERS Safety Report 14512269 (Version 1)
Quarter: 2018Q1

REPORT INFORMATION
  Report Type: Spontaneous
  Country: US (occurrence: US)
  Receive Date: 20180209
  Receipt Date: 20180209
  Transmission Date: 20180509
  Serious: Yes (Hospitalization, Other)
  Sender: FDA-Public Use
  Company Number: US-SAOL THERAPEUTICS-2017SAO01711

PATIENT
  Age: 34 Year
  Sex: Male
  Weight: 45.35 kg

DRUGS (13)
  1. LIORESAL [Suspect]
     Active Substance: BACLOFEN
     Dosage: UNK MINIMUM RATE
     Route: 037
  2. CLOBAZAM [Concomitant]
     Active Substance: CLOBAZAM
  3. MAGNESIUM HYDROXIDE. [Concomitant]
     Active Substance: MAGNESIUM HYDROXIDE
  4. AMLODIPINE [Concomitant]
     Active Substance: AMLODIPINE BESYLATE
  5. DOCUSATE SODIUM. [Concomitant]
     Active Substance: DOCUSATE SODIUM
  6. LAMOTRIGINE. [Concomitant]
     Active Substance: LAMOTRIGINE
  7. LIORESAL [Suspect]
     Active Substance: BACLOFEN
     Dosage: 800 ?G, \DAY
     Route: 037
  8. NAPROXEN SODIUM. [Concomitant]
     Active Substance: NAPROXEN SODIUM
  9. TAMSULOSIN [Concomitant]
     Active Substance: TAMSULOSIN
  10. OMEPRAZOLE. [Concomitant]
     Active Substance: OMEPRAZOLE
  11. SENNOSIDES. [Concomitant]
     Active Substance: SENNOSIDES
  12. DOCUSATE ENEMA [Concomitant]
  13. LISINOPRIL. [Concomitant]
     Active Substance: LISINOPRIL

REACTIONS (18)
  - Shunt malfunction [Unknown]
  - Gastrostomy failure [Unknown]
  - Muscle spasticity [Unknown]
  - Device failure [None]
  - Mallory-Weiss syndrome [Unknown]
  - Pyrexia [None]
  - Anaemia [None]
  - Device infusion issue [Unknown]
  - Sinus tachycardia [Unknown]
  - Device battery issue [Unknown]
  - Seizure [Unknown]
  - Device connection issue [None]
  - Drug withdrawal syndrome [Unknown]
  - Pneumonia aspiration [Unknown]
  - Ileus [Unknown]
  - Acute respiratory failure [Unknown]
  - Atelectasis [Unknown]
  - Intestinal pseudo-obstruction [Unknown]

NARRATIVE: CASE EVENT DATE: 20170922
